FAERS Safety Report 10152773 (Version 1)
Quarter: 2014Q2

REPORT INFORMATION
  Report Type: Spontaneous
  Country: IT (occurrence: IT)
  Receive Date: 20140505
  Receipt Date: 20140505
  Transmission Date: 20141212
  Serious: Yes (Other)
  Sender: FDA-Public Use
  Company Number: IT-PFIZER INC-2014120081

PATIENT
  Age: 67 Year
  Sex: Male

DRUGS (3)
  1. EPIRUBICIN HCL [Suspect]
     Indication: OESOPHAGEAL CARCINOMA
     Dosage: 60 MG, SINGLE
     Route: 042
     Dates: start: 20140325
  2. FLUOROURACIL [Suspect]
     Indication: OESOPHAGEAL CARCINOMA
     Dosage: 200 MG, SINGLE
     Route: 042
     Dates: start: 20140325, end: 20140325
  3. OXALIPLATIN [Suspect]
     Indication: OESOPHAGEAL CARCINOMA
     Dosage: 160 MG, SINGLE
     Route: 042
     Dates: start: 20140325, end: 20140325

REACTIONS (4)
  - Hyperbilirubinaemia [Recovering/Resolving]
  - Neutropenia [Recovering/Resolving]
  - Anaemia [Recovering/Resolving]
  - Thrombocytopenia [Recovering/Resolving]
